FAERS Safety Report 6574632-9 (Version None)
Quarter: 2010Q1

REPORT INFORMATION
  Report Type: 
  Country: None (occurrence: None)
  Receive Date: 20100201
  Receipt Date: 20100126
  Transmission Date: 20100710
  Serious: Yes (Life-Threatening)
  Sender: FDA-Public Use
  Company Number: 2010SP005650

PATIENT
  Age: 35 Year
  Sex: Male
  Weight: 90 kg

DRUGS (4)
  1. MUSCULAX (VECURONIUM BROMIDE /00600002/) [Suspect]
     Indication: NEUROMUSCULAR BLOCKING THERAPY
     Dosage: 14 MG; IV
     Route: 042
     Dates: start: 20100126, end: 20100126
  2. DIPRIVAN (PROPOFOL /00700101/) [Suspect]
     Indication: INDUCTION OF ANAESTHESIA
     Dosage: 100 MG; IV
     Route: 042
     Dates: start: 20100126, end: 20100126
  3. ULTIVA [Suspect]
     Indication: INDUCTION OF ANAESTHESIA
     Dosage: 0.99 MG; IV
     Route: 042
     Dates: start: 20100126, end: 20100126
  4. SEVOFLURANE [Concomitant]

REACTIONS (1)
  - BRADYCARDIA [None]
